FAERS Safety Report 25525516 (Version 2)
Quarter: 2025Q3

REPORT INFORMATION
  Report Type: Spontaneous
  Country: CO (occurrence: CO)
  Receive Date: 20250707
  Receipt Date: 20250813
  Transmission Date: 20251021
  Serious: Yes (Hospitalization, Disabling)
  Sender: REGENERON
  Company Number: CO-BAYER-2025A087949

PATIENT
  Sex: Female

DRUGS (3)
  1. EYLEA [Suspect]
     Active Substance: AFLIBERCEPT
     Indication: Macular degeneration
     Dosage: 40 MG, Q1MON, SOLUTION FOR INJECTION, 40 MG/ML
     Route: 031
     Dates: start: 20240628
  2. EYLEA [Suspect]
     Active Substance: AFLIBERCEPT
     Indication: Retinal drusen
  3. EYLEA [Suspect]
     Active Substance: AFLIBERCEPT
     Indication: Diabetic retinopathy

REACTIONS (2)
  - Finger amputation [Unknown]
  - Blood glucose decreased [Unknown]

NARRATIVE: CASE EVENT DATE: 20250601
